FAERS Safety Report 14519610 (Version 1)
Quarter: 2018Q1

REPORT INFORMATION
  Report Type: Spontaneous
  Country: US (occurrence: US)
  Receive Date: 20180210
  Receipt Date: 20180210
  Transmission Date: 20180509
  Serious: Yes (Disabling, Other)
  Sender: FDA-Public Use
  Company Number: None

PATIENT
  Age: 24 Year
  Sex: Male
  Weight: 81 kg

DRUGS (2)
  1. ZANAFLEX [Concomitant]
     Active Substance: TIZANIDINE HYDROCHLORIDE
  2. MIRVASO [Suspect]
     Active Substance: BRIMONIDINE TARTRATE
     Indication: FLUSHING
     Route: 061
     Dates: start: 20180201, end: 20180203

REACTIONS (4)
  - Erythema [None]
  - Skin swelling [None]
  - Burning sensation [None]
  - Rash macular [None]

NARRATIVE: CASE EVENT DATE: 20180203
